FAERS Safety Report 16943260 (Version 1)
Quarter: 2019Q4

REPORT INFORMATION
  Report Type: Spontaneous
  Country: JP (occurrence: JP)
  Receive Date: 20191021
  Receipt Date: 20191021
  Transmission Date: 20200122
  Serious: Yes (Other)
  Sender: FDA-Public Use
  Company Number: NVSC2019JP008238

PATIENT
  Age: 71 Year
  Sex: Male

DRUGS (7)
  1. BEVACIZUMAB. [Suspect]
     Active Substance: BEVACIZUMAB
     Indication: COLORECTAL CANCER METASTATIC
     Dosage: 5 MG/KG, CYCLIC (279 MG)
     Route: 065
     Dates: start: 201805
  2. 5 FLUOROURACIL [Suspect]
     Active Substance: FLUOROURACIL
     Indication: COLORECTAL CANCER METASTATIC
     Dosage: 400 MG/M2, CYCLIC (669 MG)
     Route: 040
     Dates: start: 201805
  3. 5 FLUOROURACIL [Suspect]
     Active Substance: FLUOROURACIL
     Dosage: 2400 MG/M2, CYCLIC (4,015 MG)
     Route: 065
  4. CALCIUM FOLINATE [Suspect]
     Active Substance: LEUCOVORIN CALCIUM
     Indication: COLORECTAL CANCER METASTATIC
     Dosage: 200 MG/M2, CYCLIC (334 MG)
     Route: 065
     Dates: start: 201805
  5. 5 FLUOROURACIL [Suspect]
     Active Substance: FLUOROURACIL
     Dosage: 320 MG/M2, CYCLIC (534 MG)
     Route: 040
  6. OXALIPLATIN. [Suspect]
     Active Substance: OXALIPLATIN
     Indication: COLORECTAL CANCER METASTATIC
     Dosage: 60 MG/M2, CYCLIC (100 MG)
     Route: 065
     Dates: start: 201805
  7. 5 FLUOROURACIL [Suspect]
     Active Substance: FLUOROURACIL
     Dosage: 1920 MG/M2, CYCLIC (3,200 MG)
     Route: 065

REACTIONS (3)
  - Leukopenia [Unknown]
  - Neutropenia [Unknown]
  - Bone marrow failure [Unknown]
